FAERS Safety Report 11276096 (Version 1)
Quarter: 2015Q2

REPORT INFORMATION
  Report Type: Spontaneous
  Country: US (occurrence: None)
  Receive Date: 20150625
  Receipt Date: 20150625
  Transmission Date: 20150821
  Serious: No
  Sender: FDA-Public Use
  Company Number: A-NJ2015-113974

PATIENT
  Age: 84 Year
  Sex: Male

DRUGS (4)
  1. OPSUMIT [Suspect]
     Active Substance: MACITENTAN
     Indication: PULMONARY HYPERTENSION
     Route: 048
  2. REVATIO (SILDENAFIL CITRATE) [Concomitant]
  3. WARFARIN (WARFARIN) [Concomitant]
     Active Substance: WARFARIN
  4. TYVASO [Concomitant]
     Active Substance: TREPROSTINIL

REACTIONS (2)
  - Vision blurred [None]
  - Visual impairment [None]
